FAERS Safety Report 11333195 (Version 1)
Quarter: 2015Q3

REPORT INFORMATION
  Report Type: Spontaneous
  Country: US (occurrence: US)
  Receive Date: 20150803
  Receipt Date: 20150803
  Transmission Date: 20151125
  Serious: No
  Sender: FDA-Public Use
  Company Number: US-ELI_LILLY_AND_COMPANY-US200708001126

PATIENT
  Age: 51 Year
  Sex: Female
  Weight: 81.63 kg

DRUGS (5)
  1. ZYPREXA [Suspect]
     Active Substance: OLANZAPINE
     Indication: DEPRESSION
     Dosage: 5 MG, UNK
     Dates: start: 20051222
  2. ZYPREXA [Suspect]
     Active Substance: OLANZAPINE
     Dosage: 2.5 MG, UNK
     Dates: start: 20041104
  3. ZYPREXA [Suspect]
     Active Substance: OLANZAPINE
     Dosage: 5 MG, UNK
     Dates: end: 20060523
  4. ZYPREXA [Suspect]
     Active Substance: OLANZAPINE
     Dosage: 5 MG, UNK
     Dates: start: 20010108, end: 20030502
  5. ZYPREXA [Suspect]
     Active Substance: OLANZAPINE
     Dosage: 10 MG, UNK
     Dates: start: 20031211, end: 20040927

REACTIONS (8)
  - Hypertension [Unknown]
  - Weight increased [Not Recovered/Not Resolved]
  - Hyperglycaemia [Unknown]
  - Type 2 diabetes mellitus [Not Recovered/Not Resolved]
  - Glucose tolerance impaired [Not Recovered/Not Resolved]
  - Neuropathy peripheral [Not Recovered/Not Resolved]
  - Blood cholesterol abnormal [Unknown]
  - Polydipsia [Unknown]

NARRATIVE: CASE EVENT DATE: 2003
